FAERS Safety Report 5882295-0 (Version None)
Quarter: 2008Q3

REPORT INFORMATION
  Report Type: 
  Country: None (occurrence: None)
  Receive Date: 20080912
  Receipt Date: 20080728
  Transmission Date: 20090109
  Serious: No
  Sender: FDA-Public Use
  Company Number: US-ABBOTT-08P-163-0467020-00

PATIENT
  Sex: Male
  Weight: 57.658 kg

DRUGS (6)
  1. HUMIRA [Suspect]
     Indication: CROHN'S DISEASE
     Route: 058
     Dates: end: 20080501
  2. HUMIRA [Suspect]
     Dosage: 160MG STARTER DOSE
     Route: 058
     Dates: start: 20080220
  3. HUMIRA [Suspect]
     Route: 058
  4. HUMIRA [Suspect]
     Route: 058
     Dates: start: 20080501
  5. BUDESONIDE [Concomitant]
     Indication: COLONIC FISTULA
     Route: 048
     Dates: start: 20080101
  6. PROBIOTICS [Concomitant]
     Indication: CROHN'S DISEASE
     Route: 048
     Dates: start: 20080501

REACTIONS (10)
  - ABDOMINAL PAIN UPPER [None]
  - CLOSTRIDIUM DIFFICILE COLITIS [None]
  - CROHN'S DISEASE [None]
  - DIARRHOEA [None]
  - DRUG INEFFECTIVE [None]
  - HAEMATOCHEZIA [None]
  - PYREXIA [None]
  - RASH [None]
  - WEIGHT DECREASED [None]
  - WHITE BLOOD CELL COUNT INCREASED [None]
